FAERS Safety Report 10034222 (Version 1)
Quarter: 2014Q1

REPORT INFORMATION
  Report Type: Spontaneous
  Country: US (occurrence: US)
  Receive Date: 20140325
  Receipt Date: 20140325
  Transmission Date: 20141002
  Serious: Yes (Other)
  Sender: FDA-Public Use
  Company Number: US-BAYER-2014-041934

PATIENT
  Age: 22 Year
  Sex: Female

DRUGS (5)
  1. YAZ [Suspect]
     Dosage: UNK
     Dates: start: 20070116
  2. CIPRO [Concomitant]
     Dosage: 500 MG, UNK
     Dates: start: 20110801
  3. AMBIEN [Concomitant]
     Dosage: UNK
     Dates: start: 201108
  4. HYDROCODONE [Concomitant]
  5. PCP [Concomitant]

REACTIONS (5)
  - Embolism venous [None]
  - Subclavian vein thrombosis [None]
  - Axillary vein thrombosis [None]
  - Thrombophlebitis superficial [None]
  - Peripheral artery thrombosis [None]
